FAERS Safety Report 9179909 (Version 4)
Quarter: 2013Q2

REPORT INFORMATION
  Report Type: Report from Study
  Country: JP (occurrence: JP)
  Receive Date: 20130321
  Receipt Date: 20130429
  Transmission Date: 20140414
  Serious: No
  Sender: FDA-Public Use
  Company Number: JP-PFIZER INC-2013088636

PATIENT
  Age: 60 Year
  Sex: Female
  Weight: 56 kg

DRUGS (11)
  1. FOSPHENYTOIN SODIUM [Suspect]
     Indication: CONVULSION PROPHYLAXIS
     Dosage: 18 MG/KG, UNK
     Dates: start: 20130305
  2. FOSPHENYTOIN SODIUM [Suspect]
     Dosage: 6.7 MG/KG, UNK
     Dates: start: 20130305
  3. SOLDEM 3A [Concomitant]
     Indication: PROPHYLAXIS
     Dosage: 500 ML, UNK
     Dates: start: 20130305
  4. ADONA [Concomitant]
     Indication: PROPHYLAXIS
     Dosage: 20 ML, UNK
     Dates: start: 20130305
  5. TRANSAMIN [Concomitant]
     Indication: PROPHYLAXIS
     Dosage: 10 ML, UNK
     Dates: start: 20130305
  6. DECADRON [Concomitant]
     Indication: POSTOPERATIVE CARE
     Dosage: 4 ML, UNK
     Dates: start: 20130305
  7. GASTER [Concomitant]
     Indication: PROPHYLAXIS
     Dosage: 2 ML, UNK
     Dates: start: 20130305
  8. CEFOTIAM HYDROCHLORIDE [Concomitant]
     Indication: PROPHYLAXIS
     Dosage: 2 G, UNK
     Dates: start: 20130305
  9. PERDIPINE [Concomitant]
     Dosage: UNK
  10. GLYCERIN W/FRUCTOSE [Concomitant]
     Indication: POSTOPERATIVE CARE
     Dosage: 400 ML, UNK
     Dates: start: 20130305
  11. AMINO ACIDS/ELECTROLYTES/GLUCOSE/VITAMINS [Concomitant]
     Indication: PROPHYLAXIS
     Dosage: 1000 ML, UNK
     Dates: start: 20130305

REACTIONS (1)
  - Headache [Recovered/Resolved]
